FAERS Safety Report 4725854-0 (Version None)
Quarter: 2005Q3

REPORT INFORMATION
  Report Type: 
  Country: None (occurrence: None)
  Receive Date: 20050722
  Receipt Date: 20050722
  Transmission Date: 20060218
  Serious: Yes (Other)
  Sender: FDA-Public Use
  Company Number: None

PATIENT
  Sex: Female
  Weight: 101.6057 kg

DRUGS (1)
  1. CILOSTAZOL [Suspect]
     Indication: PERIPHERAL VASCULAR DISORDER
     Dosage: 1 TABLET DAILY  4-5 WEEKS

REACTIONS (3)
  - DYSPEPSIA [None]
  - NAUSEA [None]
  - VOMITING [None]
